FAERS Safety Report 16957103 (Version 2)
Quarter: 2021Q1

REPORT INFORMATION
  Report Type: Spontaneous
  Country: CZ (occurrence: CZ)
  Receive Date: 20191024
  Receipt Date: 20210208
  Transmission Date: 20210419
  Serious: Yes (Death, Other)
  Sender: FDA-Public Use
  Company Number: CZ-SA-2019SA269605

PATIENT
  Age: 67 Year
  Sex: Male

DRUGS (14)
  1. NITROGLYCERIN. [Concomitant]
     Active Substance: NITROGLYCERIN
     Indication: ANGINA PECTORIS
     Dosage: UNK
  2. PRESTARIUM NEO COMBI [Concomitant]
     Active Substance: INDAPAMIDE\PERINDOPRIL ARGININE
     Indication: HYPERTENSION
     Dosage: UNK
  3. BLOXAZOC [Concomitant]
     Active Substance: METOPROLOL SUCCINATE
     Indication: MYOCARDIAL ISCHAEMIA
     Dosage: UNK
  4. PRALUENT [Suspect]
     Active Substance: ALIROCUMAB
     Indication: HYPERLIPIDAEMIA
     Dosage: UNK
  5. OMNIC TOCAS [Concomitant]
     Active Substance: TAMSULOSIN HYDROCHLORIDE
     Indication: BENIGN PROSTATIC HYPERPLASIA
     Dosage: UNK
  6. MONO MACK [Concomitant]
     Active Substance: ISOSORBIDE MONONITRATE
     Indication: MYOCARDIAL ISCHAEMIA
     Dosage: UNK
  7. PREDUCTAL [Concomitant]
     Active Substance: TRIMETAZIDINE DIHYDROCHLORIDE
     Indication: MYOCARDIAL ISCHAEMIA
     Dosage: UNK
  8. SORVASTA [Concomitant]
     Active Substance: ROSUVASTATIN CALCIUM
     Indication: HYPERLIPIDAEMIA
     Dosage: UNK
  9. EVINACUMAB. [Suspect]
     Active Substance: EVINACUMAB
     Indication: HYPERCHOLESTEROLAEMIA
     Dosage: 300 MG, WEEKLY
     Route: 058
     Dates: start: 20190326, end: 20190709
  10. ORCAL NEO [Concomitant]
     Indication: HYPERTENSION
     Dosage: UNK
  11. EZETROL [Concomitant]
     Active Substance: EZETIMIBE
     Indication: HYPERLIPIDAEMIA
     Dosage: UNK
  12. RIVODARON [Concomitant]
     Active Substance: AMIODARONE HYDROCHLORIDE
     Indication: VENTRICULAR EXTRASYSTOLES
     Dosage: UNK
  13. GODASAL [Concomitant]
     Active Substance: ASPIRIN\GLYCINE
     Indication: MYOCARDIAL ISCHAEMIA
     Dosage: UNK
  14. APO?FENO [Concomitant]
     Active Substance: FENOFIBRATE
     Indication: HYPERLIPIDAEMIA
     Dosage: UNK

REACTIONS (1)
  - Cardiac failure [Fatal]

NARRATIVE: CASE EVENT DATE: 20190821
